FAERS Safety Report 24810545 (Version 1)
Quarter: 2025Q1

REPORT INFORMATION
  Report Type: Spontaneous
  Country: ES (occurrence: ES)
  Receive Date: 20250106
  Receipt Date: 20250106
  Transmission Date: 20250409
  Serious: Yes (Hospitalization)
  Sender: PFIZER
  Company Number: None

PATIENT
  Age: 71 Year
  Sex: Male
  Weight: 82.2 kg

DRUGS (4)
  1. SPIRONOLACTONE [Suspect]
     Active Substance: SPIRONOLACTONE
     Indication: Cardiac failure congestive
     Dosage: 100 MG, 1X/DAY
     Route: 048
     Dates: start: 20240904, end: 20240916
  2. SPIRONOLACTONE [Suspect]
     Active Substance: SPIRONOLACTONE
     Dosage: 25 MG, ALTERNATE DAY, EVERY 24 HOURS UNTIL 19/09/2024, REDUCE DOSAGE BY 25MG EVERY DAY 23/09/2024
     Route: 048
     Dates: start: 20240917, end: 20240923
  3. ACETAZOLAMIDE [Suspect]
     Active Substance: ACETAZOLAMIDE
     Indication: Cardiac failure congestive
     Dosage: 250 MG, DAILY, EVERY 24 HOURS
     Route: 048
     Dates: start: 20240621, end: 20240923
  4. FUROSEMIDE [Suspect]
     Active Substance: FUROSEMIDE
     Indication: Cardiac failure congestive
     Dosage: 120 MG, 2X/DAY, 1-1-0
     Route: 048
     Dates: start: 20240621, end: 20240923

REACTIONS (3)
  - Hyperkalaemia [Recovered/Resolved]
  - Acute kidney injury [Recovered/Resolved]
  - Metabolic acidosis [Recovered/Resolved]

NARRATIVE: CASE EVENT DATE: 20240916
